FAERS Safety Report 8586450-0 (Version None)
Quarter: 2012Q3

REPORT INFORMATION
  Report Type: 
  Country: None (occurrence: None)
  Receive Date: 20120810
  Receipt Date: 20120726
  Transmission Date: 20120928
  Serious: Yes (Other)
  Sender: FDA-Public Use
  Company Number: CA-ROCHE-704683

PATIENT
  Age: 89 Year

DRUGS (1)
  1. AVASTIN [Suspect]
     Indication: AGE-RELATED MACULAR DEGENERATION
     Dosage: 6 INJECTIONS IN TOTAL
     Route: 050

REACTIONS (2)
  - VISUAL ACUITY REDUCED [None]
  - EYE INFLAMMATION [None]
